FAERS Safety Report 11862666 (Version 1)
Quarter: 2015Q4

REPORT INFORMATION
  Report Type: Spontaneous
  Country: US (occurrence: None)
  Receive Date: 20151222
  Receipt Date: 20151222
  Transmission Date: 20160305
  Serious: Yes (Other)
  Sender: FDA-Public Use
  Company Number: None

PATIENT
  Age: 23 Year
  Sex: Female
  Weight: 95.89 kg

DRUGS (2)
  1. DEPO-PROVERA [Suspect]
     Active Substance: MEDROXYPROGESTERONE ACETATE
     Indication: CONTRACEPTION
     Dosage: 500?1 TABSPOON; LITTLE BOTTLE?1 TIME X EVERY THREE MONTHS?BY INJECTION TO BUTTOCKS
     Dates: start: 20080610, end: 20150724
  2. WOMEN^S ONE A DAY VITAMINS [Concomitant]

REACTIONS (11)
  - Pyrexia [None]
  - Hyperhidrosis [None]
  - Amenorrhoea [None]
  - Dyspnoea [None]
  - Blood pressure abnormal [None]
  - Loss of consciousness [None]
  - Decreased activity [None]
  - Nausea [None]
  - Anger [None]
  - Dizziness [None]
  - Headache [None]

NARRATIVE: CASE EVENT DATE: 20150523
